FAERS Safety Report 22022554 (Version 3)
Quarter: 2023Q1

REPORT INFORMATION
  Report Type: Spontaneous
  Country: SG (occurrence: None)
  Receive Date: 20230222
  Receipt Date: 20230314
  Transmission Date: 20230418
  Serious: Yes (Death, Other)
  Sender: FDA-Public Use
  Company Number: SG-ROCHE-3289926

PATIENT
  Sex: Female

DRUGS (1)
  1. AVASTIN [Suspect]
     Active Substance: BEVACIZUMAB
     Indication: Neoplasm
     Route: 065

REACTIONS (6)
  - Death [Fatal]
  - Cough [Unknown]
  - Metastatic neoplasm [Unknown]
  - Fluid retention [Unknown]
  - Dyspnoea [Unknown]
  - Gait inability [Unknown]

NARRATIVE: CASE EVENT DATE: 20221128
